FAERS Safety Report 8186506-0 (Version None)
Quarter: 2012Q1

REPORT INFORMATION
  Report Type: 
  Country: None (occurrence: None)
  Receive Date: 20120302
  Receipt Date: 20120302
  Transmission Date: 20120608
  Serious: Yes (Hospitalization)
  Sender: FDA-Public Use
  Company Number: None

PATIENT
  Age: 23 Year
  Sex: Male
  Weight: 90.7194 kg

DRUGS (2)
  1. AZITHROMYCIN [Suspect]
     Indication: PHARYNGEAL DISORDER
     Dosage: 2 TABLETS/DAY 1 1 TABLET DAY 2 THROUGH 5
     Dates: start: 20120209, end: 20120210
  2. AZITHROMYCIN [Suspect]
     Indication: PHARYNGEAL DISORDER
     Dosage: 2 TABLETS/DAY 1 1 TABLET DAY 2 THROUGH 5
     Dates: start: 20120211

REACTIONS (7)
  - OEDEMA PERIPHERAL [None]
  - PAIN IN EXTREMITY [None]
  - MOVEMENT DISORDER [None]
  - PAIN [None]
  - BLISTER [None]
  - RASH [None]
  - ARTHRALGIA [None]
